FAERS Safety Report 7231002-8 (Version None)
Quarter: 2011Q1

REPORT INFORMATION
  Report Type: 
  Country: None (occurrence: None)
  Receive Date: 20110118
  Receipt Date: 20110110
  Transmission Date: 20110831
  Serious: Yes (Other)
  Sender: FDA-Public Use
  Company Number: IT-ROCHE-752441

PATIENT
  Age: 76 Year
  Sex: Male

DRUGS (3)
  1. CAPECITABINE [Suspect]
     Route: 048
  2. LEUCOVORIN [Suspect]
     Dosage: FORM: INFUSION
     Route: 065
  3. 5-FU [Suspect]
     Dosage: FORM: INFUSION
     Route: 065

REACTIONS (3)
  - VASCULITIS [None]
  - PALMAR-PLANTAR ERYTHRODYSAESTHESIA SYNDROME [None]
  - GASTROINTESTINAL TOXICITY [None]
